FAERS Safety Report 7177313-6 (Version None)
Quarter: 2010Q4

REPORT INFORMATION
  Report Type: 
  Country: None (occurrence: None)
  Receive Date: 20101216
  Receipt Date: 20101216
  Transmission Date: 20110411
  Serious: Yes (Death, Life-Threatening, Hospitalization)
  Sender: FDA-Public Use
  Company Number: None

PATIENT
  Age: 64 Year
  Sex: Male
  Weight: 99.7 kg

DRUGS (1)
  1. HEPARIN SODIUM [Suspect]
     Indication: THROMBOSIS PROPHYLAXIS
     Dosage: 8000 UNITS ONCE IV BOLUS
     Route: 040
     Dates: start: 20101126, end: 20101126

REACTIONS (7)
  - ACUTE MYOCARDIAL INFARCTION [None]
  - ANAPHYLACTIC SHOCK [None]
  - CARDIAC ARREST [None]
  - DRUG HYPERSENSITIVITY [None]
  - DYSPNOEA [None]
  - HEPARIN-INDUCED THROMBOCYTOPENIA [None]
  - UNRESPONSIVE TO STIMULI [None]
